FAERS Safety Report 15371907 (Version 2)
Quarter: 2019Q2

REPORT INFORMATION
  Report Type: Report from Study
  Country: IT (occurrence: IT)
  Receive Date: 20180911
  Receipt Date: 20190514
  Transmission Date: 20190711
  Serious: Yes (Hospitalization)
  Sender: FDA-Public Use
  Company Number: IT-PFIZER INC-2018352689

PATIENT
  Age: 71 Year
  Sex: Male
  Weight: 67 kg

DRUGS (5)
  1. LEVOPRAID [LEVOSULPIRIDE] [Concomitant]
     Active Substance: LEVOSULPIRIDE
     Indication: PROPHYLAXIS
     Dosage: 15 GTT, 3X/DAY
     Route: 048
     Dates: start: 20180518
  2. SANDOSTATIN [Concomitant]
     Active Substance: OCTREOTIDE ACETATE
     Indication: CANCER HORMONAL THERAPY
     Dosage: 30 MG, DAILY
     Route: 048
     Dates: start: 20180502
  3. OCTREOTIDE. [Concomitant]
     Active Substance: OCTREOTIDE
     Indication: CANCER HORMONAL THERAPY
     Dosage: 0.1 MG, 3X/DAY
     Route: 030
     Dates: start: 20180502
  4. DALTEPARIN SODIUM [Suspect]
     Active Substance: DALTEPARIN SODIUM
     Indication: DEEP VEIN THROMBOSIS
     Dosage: 12500 IU, DAILY
     Route: 058
     Dates: start: 20180509, end: 20180531
  5. DELTACORTENE [Concomitant]
     Active Substance: PREDNISONE
     Indication: PROPHYLAXIS
     Dosage: 25 MG, DAILY
     Route: 048
     Dates: start: 20180509

REACTIONS (2)
  - Shock haemorrhagic [Not Recovered/Not Resolved]
  - Melaena [Not Recovered/Not Resolved]

NARRATIVE: CASE EVENT DATE: 20180531
